FAERS Safety Report 7386004-8 (Version None)
Quarter: 2011Q1

REPORT INFORMATION
  Report Type: 
  Country: None (occurrence: None)
  Receive Date: 20110331
  Receipt Date: 20110318
  Transmission Date: 20110831
  Serious: Yes (Other)
  Sender: FDA-Public Use
  Company Number: JP-JNJFOC-20110306281

PATIENT
  Weight: 2.46 kg

DRUGS (8)
  1. FLUNITRAZEPAM [Suspect]
     Indication: DRUG EXPOSURE DURING PREGNANCY
     Route: 064
  2. LEVOMEPROMAZINE MALEATE [Suspect]
     Indication: DRUG EXPOSURE VIA BREAST MILK
     Route: 064
  3. DIAZEPAM [Suspect]
     Indication: DRUG EXPOSURE VIA BREAST MILK
     Route: 064
  4. DIAZEPAM [Suspect]
     Indication: DRUG EXPOSURE DURING PREGNANCY
     Route: 064
  5. FLUNITRAZEPAM [Suspect]
     Indication: DRUG EXPOSURE VIA BREAST MILK
     Route: 064
  6. LEVOMEPROMAZINE MALEATE [Suspect]
     Indication: DRUG EXPOSURE DURING PREGNANCY
     Route: 064
  7. RISPERDAL [Suspect]
     Indication: DRUG EXPOSURE VIA BREAST MILK
     Route: 064
  8. RISPERDAL [Suspect]
     Indication: DRUG EXPOSURE DURING PREGNANCY
     Route: 064

REACTIONS (2)
  - BREAST FEEDING [None]
  - APGAR SCORE LOW [None]
